FAERS Safety Report 9226603 (Version 2)
Quarter: 2013Q2

REPORT INFORMATION
  Report Type: Spontaneous
  Country: US (occurrence: US)
  Receive Date: 20130412
  Receipt Date: 20130501
  Transmission Date: 20140414
  Serious: Yes (Hospitalization)
  Sender: FDA-Public Use
  Company Number: US-BIOGENIDEC-2013BI031830

PATIENT
  Sex: Female

DRUGS (4)
  1. AVONEX [Suspect]
     Indication: MULTIPLE SCLEROSIS
     Route: 030
     Dates: start: 19990101
  2. ANTIDEPRESSANT [Concomitant]
     Indication: DEPRESSION
  3. PRESCRIPTION CREAM (NOS) [Concomitant]
     Indication: DECUBITUS ULCER
  4. BARRIER CREAM [Concomitant]
     Indication: DECUBITUS ULCER

REACTIONS (9)
  - Breast calcifications [Recovered/Resolved]
  - Cholecystitis infective [Recovered/Resolved]
  - Decubitus ulcer [Not Recovered/Not Resolved]
  - Mobility decreased [Not Recovered/Not Resolved]
  - General symptom [Not Recovered/Not Resolved]
  - Incontinence [Not Recovered/Not Resolved]
  - Amnesia [Not Recovered/Not Resolved]
  - Dysgraphia [Not Recovered/Not Resolved]
  - Fatigue [Recovered/Resolved]
